FAERS Safety Report 10914241 (Version 1)
Quarter: 2015Q1

REPORT INFORMATION
  Report Type: Spontaneous
  Country: GB (occurrence: GB)
  Receive Date: 20150313
  Receipt Date: 20150313
  Transmission Date: 20150721
  Serious: Yes (Other)
  Sender: FDA-Public Use
  Company Number: GB-009507513-1503GBR006802

PATIENT
  Age: 65 Year
  Sex: Female

DRUGS (17)
  1. DEXAMETHASONE. [Suspect]
     Active Substance: DEXAMETHASONE
     Indication: PRODUCT USED FOR UNKNOWN INDICATION
     Dosage: 8 MG, QD
     Route: 065
     Dates: start: 20150122, end: 20150122
  2. ATORVASTATIN [Concomitant]
     Active Substance: ATORVASTATIN
     Indication: PRODUCT USED FOR UNKNOWN INDICATION
     Dosage: 20 MG, 1 IN 1 D, AT NIGHT
     Route: 065
     Dates: start: 20090904, end: 20150122
  3. LISINOPRIL. [Concomitant]
     Active Substance: LISINOPRIL
     Indication: ESSENTIAL HYPERTENSION
     Dosage: 80 MG, 1 IN 1 D
     Route: 065
     Dates: start: 20090216, end: 20150122
  4. NYSTATIN. [Concomitant]
     Active Substance: NYSTATIN
     Indication: ORAL CANDIDIASIS
     Dosage: 100,000 U/ML (1 ML,4 IN 1 D)
     Route: 048
     Dates: start: 20150114, end: 20150119
  5. OMEPRAZOLE. [Concomitant]
     Active Substance: OMEPRAZOLE
     Indication: GASTROOESOPHAGEAL REFLUX DISEASE
     Dosage: 20 MG, 1 IN 1 D
     Route: 065
     Dates: start: 20090820, end: 20150122
  6. AMLODIPINE BESYLATE. [Concomitant]
     Active Substance: AMLODIPINE BESYLATE
     Indication: ESSENTIAL HYPERTENSION
     Dosage: 10 MG, QD
     Route: 065
     Dates: start: 20110801, end: 20150122
  7. ORAMORPH SR SUSTAINED RELEASE [Concomitant]
     Active Substance: MORPHINE SULFATE
  8. AMOXICILLIN. [Concomitant]
     Active Substance: AMOXICILLIN
     Indication: LOWER RESPIRATORY TRACT INFECTION
     Dosage: 500 MG, TID
     Route: 065
     Dates: start: 20141231, end: 20150106
  9. FLUCONAZOLE. [Concomitant]
     Active Substance: FLUCONAZOLE
     Indication: PRODUCT USED FOR UNKNOWN INDICATION
     Dosage: DAILY DOSE: UNKNOWN
     Route: 065
     Dates: start: 20150119, end: 20150122
  10. METFORMIN [Concomitant]
     Active Substance: METFORMIN HYDROCHLORIDE
     Indication: TYPE 2 DIABETES MELLITUS
     Dosage: 500 MG,3 IN 1 D
     Route: 065
     Dates: start: 20090417, end: 20090422
  11. NITROFURANTOIN. [Concomitant]
     Active Substance: NITROFURANTOIN
     Indication: URINARY TRACT INFECTION
     Dosage: 100 MG, 2 IN 1 D
     Route: 065
     Dates: start: 20141224, end: 20141231
  12. QUININE [Concomitant]
     Active Substance: QUININE
     Indication: PRODUCT USED FOR UNKNOWN INDICATION
     Dosage: 2.5 - 5 ML WHEN REQUIRED (UNKNOWN, AS REQUIRED)
     Route: 065
     Dates: start: 20141231, end: 20150122
  13. ZOPICLONE [Concomitant]
     Active Substance: ZOPICLONE
     Indication: PRODUCT USED FOR UNKNOWN INDICATION
     Dosage: 7.5 MG, 1 IN 1 D, AT NIGHT
     Route: 065
     Dates: start: 20100506, end: 20150122
  14. CARBOPLATIN. [Concomitant]
     Active Substance: CARBOPLATIN
     Indication: SMALL CELL LUNG CANCER
     Dosage: FIRST DOSE OF COURSE OF CHEMOTHERAPY GIVEN IN HOSPITAL (UNKNOWN)
     Route: 042
     Dates: start: 20150117, end: 20150117
  15. DEXAMETHASONE. [Suspect]
     Active Substance: DEXAMETHASONE
     Dosage: 8 MG, BID
     Route: 065
     Dates: start: 20150107, end: 20150121
  16. ETOPOSIDE. [Concomitant]
     Active Substance: ETOPOSIDE
     Indication: SMALL CELL LUNG CANCER
     Dosage: FIRST DOSE OF COURSE OF CHEMOTHERAPY GIVEN IN HOSPITAL (UNKNOWN)
     Route: 042
     Dates: start: 20150117, end: 20150117
  17. TRIMETHOPRIM. [Concomitant]
     Active Substance: TRIMETHOPRIM
     Indication: PRODUCT USED FOR UNKNOWN INDICATION
     Dosage: 200 MG, 2 IN 1 D
     Route: 065
     Dates: start: 20141222, end: 20141223

REACTIONS (1)
  - Diabetic ketoacidosis [Unknown]

NARRATIVE: CASE EVENT DATE: 2015
